FAERS Safety Report 7571607-8 (Version None)
Quarter: 2011Q2

REPORT INFORMATION
  Report Type: 
  Country: None (occurrence: None)
  Receive Date: 20110624
  Receipt Date: 20110616
  Transmission Date: 20111010
  Serious: Yes (Other)
  Sender: FDA-Public Use
  Company Number: JP-JNJFOC-20100403123

PATIENT
  Sex: Female
  Weight: 43 kg

DRUGS (19)
  1. DAI-KENCHU-TO [Concomitant]
     Route: 048
  2. LASIX [Concomitant]
     Indication: HYPERTENSION
     Route: 048
  3. FAMOTIDINE [Concomitant]
     Route: 048
     Dates: start: 20090628, end: 20090701
  4. ASPIRIN [Concomitant]
     Route: 048
  5. DOXIL [Suspect]
     Indication: OVARIAN CANCER RECURRENT
     Dosage: 1ST COURSE
     Route: 042
     Dates: start: 20090529, end: 20090529
  6. DOXIL [Suspect]
     Dosage: COURSE 2
     Route: 042
     Dates: start: 20090626, end: 20090626
  7. DOXIL [Suspect]
     Dosage: COURSE 3
     Route: 042
     Dates: start: 20090724, end: 20090724
  8. AMLODIPINE [Concomitant]
     Route: 048
  9. DECADRON [Concomitant]
     Indication: PROPHYLAXIS
     Route: 042
     Dates: start: 20090529, end: 20090529
  10. ALFAROL [Concomitant]
     Route: 048
  11. OMEPRAZOLE [Concomitant]
     Route: 048
  12. RIZE [Concomitant]
     Route: 048
     Dates: end: 20090709
  13. ALDACTONE [Concomitant]
     Indication: HYPERTENSION
     Route: 048
  14. GASLON N [Concomitant]
     Route: 048
  15. AZUNOL [Concomitant]
     Indication: PROPHYLAXIS
     Route: 002
     Dates: start: 20090529
  16. LOSARTAN POTASSIUM AND HYDROCHLOROTHIAZIDE [Concomitant]
     Route: 048
  17. RIZE [Concomitant]
     Route: 048
     Dates: start: 20090710
  18. AZUNOL [Concomitant]
     Route: 002
     Dates: start: 20090724
  19. SELBEX [Concomitant]
     Indication: PROPHYLAXIS
     Route: 048
     Dates: start: 20090531, end: 20090603

REACTIONS (1)
  - NEUROPATHY PERIPHERAL [None]
